FAERS Safety Report 4514746-8 (Version None)
Quarter: 2004Q4

REPORT INFORMATION
  Report Type: 
  Country: None (occurrence: None)
  Receive Date: 20041201
  Receipt Date: 20041119
  Transmission Date: 20050328
  Serious: Yes (Hospitalization)
  Sender: FDA-Public Use
  Company Number: US-JNJFOC-20041105213

PATIENT
  Sex: Male
  Weight: 75.89 kg

DRUGS (13)
  1. REMICADE [Suspect]
     Route: 042
  2. REMICADE [Suspect]
     Indication: CROHN'S DISEASE
     Route: 042
  3. PENTASA [Concomitant]
  4. PURINETHOL [Concomitant]
  5. B-12 [Concomitant]
     Route: 050
  6. M.V.I. [Concomitant]
  7. M.V.I. [Concomitant]
  8. M.V.I. [Concomitant]
  9. M.V.I. [Concomitant]
  10. M.V.I. [Concomitant]
  11. M.V.I. [Concomitant]
  12. M.V.I. [Concomitant]
  13. M.V.I. [Concomitant]

REACTIONS (5)
  - BODY TEMPERATURE INCREASED [None]
  - FATIGUE [None]
  - HISTOPLASMOSIS [None]
  - LUNG DISORDER [None]
  - PAIN [None]
